FAERS Safety Report 7434996-0 (Version None)
Quarter: 2011Q2

REPORT INFORMATION
  Report Type: 
  Country: None (occurrence: None)
  Receive Date: 20110418
  Receipt Date: 20110323
  Transmission Date: 20111010
  Serious: Yes (Other)
  Sender: FDA-Public Use
  Company Number: 72566

PATIENT
  Sex: Female

DRUGS (3)
  1. OXY CLINICAL CLEARING TREATMENT 5% BENZOYL PEROXIDE [Suspect]
     Indication: ACNE
     Dosage: 3X, TOPICAL
     Route: 061
  2. OXY CLINICAL HYDRATING THERAPY [Suspect]
     Indication: ACNE
     Dosage: 3X, TOPICAL
     Route: 061
  3. OXY CLINICAL ADVANCED FACE WASH 2% SALICYLIC ACID [Suspect]
     Indication: ACNE
     Dosage: 3X, TOPICAL
     Route: 061

REACTIONS (3)
  - SKIN BURNING SENSATION [None]
  - SWELLING FACE [None]
  - PRURITUS [None]
